FAERS Safety Report 8855091 (Version 2)
Quarter: 2013Q1

REPORT INFORMATION
  Report Type: Spontaneous
  Country: FR (occurrence: FR)
  Receive Date: 20121023
  Receipt Date: 20130214
  Transmission Date: 20140127
  Serious: Yes (Life-Threatening)
  Sender: FDA-Public Use
  Company Number: FR-BAYER-2012-108673

PATIENT
  Age: 33 Year
  Sex: Female
  Weight: 49.89 kg

DRUGS (1)
  1. MIRENA [Suspect]
     Dosage: 20 ?G/D, CONT
     Route: 015
     Dates: start: 201006

REACTIONS (1)
  - Invasive ductal breast carcinoma [Not Recovered/Not Resolved]
